FAERS Safety Report 15991772 (Version 1)
Quarter: 2019Q1

REPORT INFORMATION
  Report Type: Spontaneous
  Country: NL (occurrence: NL)
  Receive Date: 20190221
  Receipt Date: 20190221
  Transmission Date: 20190418
  Serious: Yes (Other)
  Sender: FDA-Public Use
  Company Number: NL-TEVA-2019-NL-1014047

PATIENT
  Sex: Female
  Weight: 61 kg

DRUGS (4)
  1. ZOLPIDEM [Concomitant]
     Active Substance: ZOLPIDEM\ZOLPIDEM TARTRATE
     Dosage: 1DD0, 5PCS IF NECESSARY
     Dates: start: 20180718
  2. SYNAPAUSE E3 (ESTRIOL) [Suspect]
     Active Substance: ESTRIOL SUCCINATE
     Indication: ATROPHIC VULVOVAGINITIS
     Dosage: 2X/WEEK ON MON AND THU 1ST
     Dates: start: 20180323
  3. LABETALOL TABLET, 100 MG (MILLIGRAM) [Suspect]
     Active Substance: LABETALOL HYDROCHLORIDE
     Indication: HYPERTENSION
     Dosage: 2DD1ST
     Dates: start: 20171101
  4. TRACYDAL (TRANYLCYPROMINE) TABLET, 20 MG (MILLIGRAM) [Suspect]
     Active Substance: TRANYLCYPROMINE SULFATE
     Indication: DEPRESSION
     Dosage: 8U 1ST, 12U 0,5ST, 15U 0,5ST,18U 0,5ST
     Dates: start: 20170105

REACTIONS (4)
  - Arthralgia [Not Recovered/Not Resolved]
  - Neuropathy peripheral [Not Recovered/Not Resolved]
  - Fatigue [Not Recovered/Not Resolved]
  - Inflammation [Not Recovered/Not Resolved]
